FAERS Safety Report 11599314 (Version 11)
Quarter: 2018Q3

REPORT INFORMATION
  Report Type: Spontaneous
  Country: US (occurrence: US)
  Receive Date: 20151006
  Receipt Date: 20180927
  Transmission Date: 20181010
  Serious: Yes (Life-Threatening, Hospitalization, Other)
  Sender: FDA-Public Use
  Company Number: US-ACTELION PHARMACEUTICALS US, INC.-A-NJ2015-124965

PATIENT
  Age: 71 Year
  Sex: Female
  Weight: 89.34 kg

DRUGS (20)
  1. OXYGEN. [Concomitant]
     Active Substance: OXYGEN
  2. PRAVASTATIN. [Concomitant]
     Active Substance: PRAVASTATIN
     Dosage: UNK
     Dates: start: 20141031
  3. VELETRI [Suspect]
     Active Substance: EPOPROSTENOL
     Indication: PULMONARY ARTERIAL HYPERTENSION
     Dosage: 28 NG/KG, PER MIN
     Route: 042
     Dates: start: 20141128
  4. XARELTO [Concomitant]
     Active Substance: RIVAROXABAN
     Dosage: 15 MG, UNK
  5. LOPERAMIDE [Concomitant]
     Active Substance: LOPERAMIDE
     Dosage: UNK
     Dates: start: 20150406
  6. FUROSEMIDE. [Concomitant]
     Active Substance: FUROSEMIDE
     Dosage: UNK
     Route: 042
     Dates: start: 20150924
  7. VANCOMYCIN [Concomitant]
     Active Substance: VANCOMYCIN
     Dosage: UNK
     Dates: start: 20151015
  8. METOLAZONE. [Concomitant]
     Active Substance: METOLAZONE
  9. LASIX [Suspect]
     Active Substance: FUROSEMIDE
     Indication: PRODUCT USED FOR UNKNOWN INDICATION
     Dosage: UNK
     Route: 065
     Dates: start: 20111118
  10. CHLOROTHIAZIDE. [Concomitant]
     Active Substance: CHLOROTHIAZIDE
  11. XARELTO [Concomitant]
     Active Substance: RIVAROXABAN
     Dosage: 20 MG, UNK
  12. METOPROLOL. [Concomitant]
     Active Substance: METOPROLOL
     Dosage: UNK
     Dates: start: 20141128
  13. CEFEPIME [Concomitant]
     Active Substance: CEFEPIME HYDROCHLORIDE
     Dosage: UNK
     Dates: start: 20151015
  14. ADCIRCA [Concomitant]
     Active Substance: TADALAFIL
  15. OMEGA 3 [Concomitant]
     Active Substance: OMEGA-3 FATTY ACIDS
     Dosage: UNK
     Dates: start: 20141031
  16. OPSUMIT [Suspect]
     Active Substance: MACITENTAN
     Indication: PULMONARY ARTERIAL HYPERTENSION
     Dosage: 10 MG, UNK
     Route: 048
     Dates: start: 20150904, end: 20151022
  17. CIPROFLOXACIN. [Concomitant]
     Active Substance: CIPROFLOXACIN
     Dosage: UNK
     Dates: start: 20151015
  18. DIPHENHYDRAMINE CITRATE W/PARACETAMOL [Concomitant]
     Active Substance: ACETAMINOPHEN\DIPHENHYDRAMINE CITRATE
     Dosage: UNK
     Dates: start: 20141118
  19. IRON [Concomitant]
     Active Substance: IRON
     Dosage: UNK
     Dates: start: 20141031
  20. IRON SUCROSE [Concomitant]
     Active Substance: IRON SUCROSE
     Dosage: UNK
     Dates: start: 20150929

REACTIONS (14)
  - Left ventricular failure [Recovered/Resolved with Sequelae]
  - Iron deficiency anaemia [Recovered/Resolved]
  - Dyspnoea [Recovered/Resolved with Sequelae]
  - Blood creatinine increased [Unknown]
  - Hypoxia [Recovered/Resolved with Sequelae]
  - Pulmonary oedema [Recovered/Resolved]
  - Weight increased [Recovered/Resolved with Sequelae]
  - Pulmonary arterial hypertension [Unknown]
  - Grunting [Recovered/Resolved with Sequelae]
  - Right ventricular failure [Recovered/Resolved with Sequelae]
  - Oxygen saturation decreased [Recovered/Resolved with Sequelae]
  - Respiratory failure [Recovered/Resolved with Sequelae]
  - Acute kidney injury [Unknown]
  - Respiratory distress [Recovered/Resolved with Sequelae]

NARRATIVE: CASE EVENT DATE: 20150924
